FAERS Safety Report 8859382 (Version 1)
Quarter: 2012Q4

REPORT INFORMATION
  Report Type: 
  Country: US (occurrence: US)
  Receive Date: 20121024
  Receipt Date: 20121024
  Transmission Date: 20130627
  Serious: Yes (Hospitalization, Disabling, Other)
  Sender: FDA-Public Use
  Company Number: US-009507513-2012SP000427

PATIENT

DRUGS (3)
  1. NUVARING [Suspect]
     Indication: CONTRACEPTION
     Dosage: UNK
     Route: 067
     Dates: start: 200910, end: 201001
  2. TOPAMAX [Concomitant]
     Indication: PRODUCT USED FOR UNKNOWN INDICATION
     Dosage: UNK
     Dates: start: 2006
  3. ADDERALL XR [Concomitant]
     Indication: ATTENTION DEFICIT/HYPERACTIVITY DISORDER

REACTIONS (14)
  - Post-traumatic stress disorder [Unknown]
  - Pulmonary embolism [Recovered/Resolved]
  - Deep vein thrombosis [Recovered/Resolved]
  - Depression [Unknown]
  - Anxiety [Not Recovered/Not Resolved]
  - Chest pain [Unknown]
  - Palpitations [Unknown]
  - Sinus tachycardia [Unknown]
  - Pain in extremity [Unknown]
  - Fatigue [Unknown]
  - Contusion [Unknown]
  - Back pain [Unknown]
  - Dysuria [Unknown]
  - Hypoaesthesia [Unknown]
